FAERS Safety Report 5469737-X (Version None)
Quarter: 2007Q3

REPORT INFORMATION
  Report Type: 
  Country: None (occurrence: None)
  Receive Date: 20070927
  Receipt Date: 20070919
  Transmission Date: 20080115
  Serious: Yes (Other)
  Sender: FDA-Public Use
  Company Number: FR-AMGEN-US232067

PATIENT
  Age: 38 Year
  Sex: Female

DRUGS (1)
  1. ENBREL [Suspect]
     Indication: DRUG USE FOR UNKNOWN INDICATION
     Dosage: DOSE FORM, DOSE AND FREQUENCY UNKNOWN
     Route: 058
     Dates: start: 20060101

REACTIONS (3)
  - ASTHENIA [None]
  - DYSARTHRIA [None]
  - MALAISE [None]
